FAERS Safety Report 5167064-1 (Version None)
Quarter: 2006Q4

REPORT INFORMATION
  Report Type: 
  Country: None (occurrence: None)
  Receive Date: 20061130
  Receipt Date: 20030804
  Transmission Date: 20070319
  Serious: Yes (Hospitalization)
  Sender: FDA-Public Use
  Company Number: 23100340

PATIENT
  Age: 75 Year
  Sex: Female

DRUGS (13)
  1. ARGATROBAN [Suspect]
     Indication: HEPARIN-INDUCED THROMBOCYTOPENIA
     Dosage: 2 MCG/KG/MIN CONT IV
     Route: 042
     Dates: start: 20030817
  2. WARFARIN SODIUM [Suspect]
     Indication: DEEP VEIN THROMBOSIS
  3. SPIRONOLACTONE [Concomitant]
  4. IRON POLYSACCHARIDE [Concomitant]
  5. CEFAPINE [Concomitant]
  6. LASIX [Concomitant]
  7. ZOCOR [Concomitant]
  8. PROTONIX [Concomitant]
  9. LISINOPRIL [Concomitant]
  10. COLACE [Concomitant]
  11. DIGOXIN [Concomitant]
  12. INSULIN [Concomitant]
  13. CARVEDILOL [Concomitant]

REACTIONS (4)
  - ACTIVATED PARTIAL THROMBOPLASTIN TIME PROLONGED [None]
  - DEEP VEIN THROMBOSIS [None]
  - LIVER DISORDER [None]
  - SKIN NECROSIS [None]
